FAERS Safety Report 12695045 (Version 3)
Quarter: 2016Q3

REPORT INFORMATION
  Report Type: Spontaneous
  Country: DE (occurrence: DE)
  Receive Date: 20160829
  Receipt Date: 20160907
  Transmission Date: 20161109
  Serious: Yes (Other)
  Sender: FDA-Public Use
  Company Number: DE-BAYER-2016-162952

PATIENT
  Age: 34 Year
  Sex: Female
  Weight: 55 kg

DRUGS (1)
  1. CIPROFLOXACIN. [Suspect]
     Active Substance: CIPROFLOXACIN
     Indication: CYSTITIS NONINFECTIVE
     Dosage: 500 MG, BID
     Route: 048
     Dates: start: 20160120

REACTIONS (27)
  - Myalgia [Unknown]
  - Sleep disorder [Unknown]
  - Visual acuity reduced [Unknown]
  - Anxiety [Unknown]
  - Panic attack [Unknown]
  - Dry skin [Not Recovered/Not Resolved]
  - Rash [Not Recovered/Not Resolved]
  - Tendon pain [Unknown]
  - Hormone level abnormal [Not Recovered/Not Resolved]
  - Mucosal dryness [Not Recovered/Not Resolved]
  - Cataract [Not Recovered/Not Resolved]
  - Mental impairment [Unknown]
  - Muscle spasms [Unknown]
  - Nightmare [Unknown]
  - Visual acuity reduced [Not Recovered/Not Resolved]
  - Impaired healing [Not Recovered/Not Resolved]
  - Malaise [Unknown]
  - Neuralgia [Not Recovered/Not Resolved]
  - Dizziness [Unknown]
  - Nervous system disorder [Not Recovered/Not Resolved]
  - Asthenia [Not Recovered/Not Resolved]
  - Palpitations [Unknown]
  - Impaired healing [Unknown]
  - Paraesthesia [Not Recovered/Not Resolved]
  - Toxicity to various agents [Not Recovered/Not Resolved]
  - Thinking abnormal [Not Recovered/Not Resolved]
  - Tachyarrhythmia [Unknown]

NARRATIVE: CASE EVENT DATE: 20160125
